FAERS Safety Report 6697573-5 (Version None)
Quarter: 2010Q2

REPORT INFORMATION
  Report Type: 
  Country: None (occurrence: None)
  Receive Date: 20100426
  Receipt Date: 20090513
  Transmission Date: 20101027
  Serious: No
  Sender: FDA-Public Use
  Company Number: US-ABBOTT-09P-163-0573385-00

PATIENT
  Sex: Female

DRUGS (5)
  1. AZMACORT [Suspect]
     Indication: RESPIRATORY DISORDER
     Route: 055
     Dates: start: 20090511
  2. COMBIVENT [Concomitant]
     Indication: WHEEZING
     Route: 055
     Dates: start: 20090511
  3. HYZAAR [Concomitant]
     Indication: HYPERTENSION
     Dosage: 100/25 DAILY
     Route: 048
  4. SIMVASTATIN [Concomitant]
     Indication: BLOOD CHOLESTEROL
     Route: 048
  5. METOPROLOL [Concomitant]
     Indication: CARDIAC DISORDER
     Dosage: 0.5 TAB BID  UNSURE OF STRENGTH
     Route: 048

REACTIONS (3)
  - DIZZINESS [None]
  - DRUG DOSE OMISSION [None]
  - DYSPNOEA [None]
